FAERS Safety Report 4608942-9 (Version None)
Quarter: 2005Q1

REPORT INFORMATION
  Report Type: 
  Country: None (occurrence: None)
  Receive Date: 20050311
  Receipt Date: 20050301
  Transmission Date: 20050727
  Serious: Yes (Hospitalization)
  Sender: FDA-Public Use
  Company Number: 2004-121761-NL

PATIENT
  Age: 46 Year
  Sex: Female

DRUGS (6)
  1. MIRTAZAPINE [Suspect]
     Dosage: DF
  2. VENLAFAXINE HCL [Suspect]
     Indication: DEPRESSION
     Route: 048
     Dates: start: 20020401, end: 20020501
  3. LORAZEPAM [Concomitant]
  4. MULTIVITAMINE (S) [Concomitant]
  5. OLANZAPINE [Concomitant]
  6. ZOPICLONE [Concomitant]

REACTIONS (2)
  - RED BLOOD CELL COUNT DECREASED [None]
  - WHITE BLOOD CELL COUNT DECREASED [None]
